FAERS Safety Report 9490838 (Version 1)
Quarter: 2013Q3

REPORT INFORMATION
  Report Type: Spontaneous
  Country: US (occurrence: None)
  Receive Date: 20130828
  Receipt Date: 20130828
  Transmission Date: 20140515
  Serious: Yes (Disabling)
  Sender: FDA-Public Use
  Company Number: None

PATIENT
  Age: 75 Year
  Sex: Female

DRUGS (3)
  1. LIMBREL [Suspect]
     Indication: PAIN
     Dosage: 1  TWICE DAILY  BY MOUTH
     Route: 048
     Dates: start: 20130501, end: 20130506
  2. LIMBREL [Suspect]
     Indication: ARTHRITIS
     Dosage: 1  TWICE DAILY  BY MOUTH
     Route: 048
     Dates: start: 20130501, end: 20130506
  3. TRAMADOL [Concomitant]

REACTIONS (9)
  - Migraine [None]
  - Influenza like illness [None]
  - Headache [None]
  - Pyrexia [None]
  - Chills [None]
  - Oropharyngeal pain [None]
  - Pain [None]
  - Dizziness [None]
  - Fatigue [None]
